FAERS Safety Report 10571431 (Version 1)
Quarter: 2014Q4

REPORT INFORMATION
  Report Type: Other
  Country: TR (occurrence: TR)
  Receive Date: 20141107
  Receipt Date: 20141107
  Transmission Date: 20150529
  Serious: Yes (Life-Threatening)
  Sender: FDA-Public Use
  Company Number: TR-CUBIST PHARMACEUTICALS, INC.-2014CBST001516

PATIENT

DRUGS (4)
  1. CUBICIN [Suspect]
     Active Substance: DAPTOMYCIN
     Dosage: 500 MG, QD
     Route: 042
     Dates: start: 20140918, end: 20141003
  2. CUBICIN [Suspect]
     Active Substance: DAPTOMYCIN
     Indication: PRODUCT USED FOR UNKNOWN INDICATION
     Dosage: 4.2 MG/KG, QD
     Route: 042
     Dates: start: 20140918, end: 20141003
  3. VANCOMYCIN [Concomitant]
     Active Substance: VANCOMYCIN
     Indication: PRODUCT USED FOR UNKNOWN INDICATION
     Dosage: UNK UNK, UNK
     Route: 065
     Dates: start: 20141003, end: 20141016
  4. TAZOCIN [Concomitant]
     Active Substance: PIPERACILLIN SODIUM\TAZOBACTAM SODIUM
     Indication: PRODUCT USED FOR UNKNOWN INDICATION
     Dosage: UNK UNK, UNK
     Route: 065
     Dates: start: 20141003, end: 20141016

REACTIONS (2)
  - Pulmonary fibrosis [Recovered/Resolved with Sequelae]
  - Blood urea nitrogen/creatinine ratio increased [Recovered/Resolved with Sequelae]

NARRATIVE: CASE EVENT DATE: 20141002
